FAERS Safety Report 16594392 (Version 1)
Quarter: 2019Q3

REPORT INFORMATION
  Report Type: Other
  Country: US (occurrence: US)
  Receive Date: 20190718
  Receipt Date: 20190718
  Transmission Date: 20191004
  Serious: No
  Sender: FDA-Public Use
  Company Number: US-SWEDISH ORPHAN BIOVITRUM-2019US0108

PATIENT
  Sex: Female

DRUGS (2)
  1. PREDNISONE. [Concomitant]
     Active Substance: PREDNISONE
  2. KINERET [Suspect]
     Active Substance: ANAKINRA
     Route: 058

REACTIONS (7)
  - Contusion [Unknown]
  - Paraesthesia [Unknown]
  - Dehydration [Unknown]
  - Arthralgia [Unknown]
  - Muscular weakness [Unknown]
  - Limb discomfort [Unknown]
  - Urticaria [Unknown]
